FAERS Safety Report 8565277-X (Version None)
Quarter: 2012Q3

REPORT INFORMATION
  Report Type: 
  Country: None (occurrence: None)
  Receive Date: 20120803
  Receipt Date: 20120724
  Transmission Date: 20120928
  Serious: Yes (Disabling)
  Sender: FDA-Public Use
  Company Number: PL-CELGENEUS-129-C5013-12072605

PATIENT
  Sex: Male
  Weight: 91 kg

DRUGS (10)
  1. DOCETAXEL [Suspect]
     Indication: PROSTATE CANCER
     Route: 041
     Dates: start: 20110726, end: 20110726
  2. BETO 50 ZK [Concomitant]
     Indication: HYPERTENSION
     Dosage: 50 MILLIGRAM
     Route: 048
     Dates: start: 20111201
  3. PREDNISONE [Suspect]
     Dosage: 10 GRAM
     Route: 065
     Dates: start: 20120426, end: 20120517
  4. TERTENSIF SR [Concomitant]
     Indication: HYPERTENSION
     Dosage: 15 MICROGRAM
     Route: 048
     Dates: start: 20111201
  5. PRINIVIL [Concomitant]
     Indication: HYPERTENSION
     Dosage: 5 MILLIGRAM
     Route: 048
     Dates: start: 20111201
  6. LENALIDOMIDE [Suspect]
     Indication: PROSTATE CANCER
     Dosage: 25 MILLIGRAM
     Route: 048
     Dates: start: 20110726, end: 20110815
  7. LENALIDOMIDE [Suspect]
     Dosage: 25 MILLIGRAM
     Route: 048
     Dates: start: 20111109, end: 20111122
  8. DOCETAXEL [Suspect]
     Route: 041
     Dates: start: 20120426, end: 20120426
  9. PREDNISONE [Suspect]
     Indication: PROSTATE CANCER
     Dosage: 10 GRAM
     Route: 065
     Dates: start: 20110726, end: 20110815
  10. LACIPIL [Concomitant]
     Dosage: 4 MILLIGRAM
     Route: 048
     Dates: start: 20110101

REACTIONS (1)
  - BLADDER TRANSITIONAL CELL CARCINOMA [None]
